FAERS Safety Report 15148520 (Version 2)
Quarter: 2018Q4

REPORT INFORMATION
  Report Type: Report from Study
  Country: CA (occurrence: CA)
  Receive Date: 20180716
  Receipt Date: 20181109
  Transmission Date: 20190204
  Serious: Yes (Hospitalization)
  Sender: FDA-Public Use
  Company Number: CA-JNJFOC-20180715535

PATIENT
  Sex: Female
  Weight: 55 kg

DRUGS (1)
  1. SIMPONI [Suspect]
     Active Substance: GOLIMUMAB
     Indication: ANKYLOSING SPONDYLITIS
     Route: 058
     Dates: start: 20151118

REACTIONS (2)
  - Cardiac operation [Unknown]
  - Lung neoplasm [Not Recovered/Not Resolved]

NARRATIVE: CASE EVENT DATE: 2016
